FAERS Safety Report 19651688 (Version 20)
Quarter: 2022Q4

REPORT INFORMATION
  Report Type: Report from Study
  Country: US (occurrence: US)
  Receive Date: 20210803
  Receipt Date: 20221031
  Transmission Date: 20230113
  Serious: Yes (Hospitalization, Other)
  Sender: FDA-Public Use
  Company Number: US-INSMED, INC.-2021-09077-US

PATIENT
  Sex: Male

DRUGS (6)
  1. ARIKAYCE [Suspect]
     Active Substance: AMIKACIN
     Indication: Mycobacterium avium complex infection
     Dosage: 590 MILLIGRAM, QD
     Route: 055
     Dates: start: 202107, end: 20210722
  2. ARIKAYCE [Suspect]
     Active Substance: AMIKACIN
     Dosage: 590 MILLIGRAM
     Route: 055
     Dates: start: 20210726, end: 2021
  3. ARIKAYCE [Suspect]
     Active Substance: AMIKACIN
     Dosage: 590 MILLIGRAM, QD
     Route: 055
     Dates: start: 2021, end: 2021
  4. ARIKAYCE [Suspect]
     Active Substance: AMIKACIN
     Dosage: 590 MILLIGRAM, TIW, ON MONDAY, WEDNESDAY AND FRIDAY
     Route: 055
     Dates: start: 20220110, end: 20221021
  5. PREDNISONE [Suspect]
     Active Substance: PREDNISONE
     Indication: Product used for unknown indication
     Dosage: UNK
  6. AMIKACIN [Suspect]
     Active Substance: AMIKACIN
     Indication: Product used for unknown indication
     Dosage: UNK UNK, BID
     Route: 042

REACTIONS (50)
  - Cardiac disorder [Unknown]
  - Hospitalisation [Unknown]
  - Loss of consciousness [Recovered/Resolved]
  - COVID-19 [Unknown]
  - Bacterial infection [Unknown]
  - Sepsis [Unknown]
  - Myocardial infarction [Unknown]
  - Myocardial infarction [Unknown]
  - Renal failure [Unknown]
  - Cardiac failure congestive [Unknown]
  - Mycobacterium avium complex infection [Recovered/Resolved]
  - Neuromuscular blockade [Not Recovered/Not Resolved]
  - Pneumonia [Recovered/Resolved]
  - Pneumonia [Unknown]
  - Respiratory distress [Recovered/Resolved]
  - Muscular weakness [Recovered/Resolved]
  - Adverse drug reaction [Recovered/Resolved]
  - Respiratory tract congestion [Recovering/Resolving]
  - Gait disturbance [Recovered/Resolved]
  - Central venous catheterisation [Unknown]
  - Bladder disorder [Recovered/Resolved]
  - Tremor [Recovered/Resolved]
  - Candida infection [Recovered/Resolved]
  - Gastrooesophageal reflux disease [Recovered/Resolved]
  - Fall [Unknown]
  - Atrial fibrillation [Recovered/Resolved]
  - Chest pain [Unknown]
  - Abdominal pain upper [Recovered/Resolved]
  - Pain [Recovered/Resolved]
  - Back pain [Recovered/Resolved]
  - Pain in extremity [Recovered/Resolved]
  - Pain [Unknown]
  - Pruritus [Recovered/Resolved]
  - Myalgia [Recovering/Resolving]
  - Dizziness [Recovered/Resolved]
  - Oral discomfort [Recovered/Resolved]
  - Nausea [Recovered/Resolved]
  - Dysphonia [Recovered/Resolved]
  - Malaise [Recovered/Resolved]
  - Oropharyngeal pain [Recovered/Resolved]
  - Dyspnoea [Recovered/Resolved]
  - Drug ineffective [Unknown]
  - Therapy interrupted [Unknown]
  - Intentional dose omission [Unknown]
  - Off label use [Unknown]
  - Accidental underdose [Unknown]
  - Device physical property issue [Unknown]
  - Incorrect product administration duration [Unknown]
  - Device electrical finding [Unknown]
  - Product use issue [Unknown]

NARRATIVE: CASE EVENT DATE: 20210101
